FAERS Safety Report 17896376 (Version 1)
Quarter: 2020Q2

REPORT INFORMATION
  Report Type: Spontaneous
  Country: US (occurrence: US)
  Receive Date: 20200615
  Receipt Date: 20200615
  Transmission Date: 20200714
  Serious: Yes (Disabling, Other)
  Sender: FDA-Public Use
  Company Number: None

PATIENT
  Age: 51 Year
  Sex: Female
  Weight: 143.1 kg

DRUGS (12)
  1. FLUOXETINE [Concomitant]
     Active Substance: FLUOXETINE HYDROCHLORIDE
  2. NP THYROID [Concomitant]
     Active Substance: LEVOTHYROXINE\LIOTHYRONINE
  3. HYDROXYZINE PAMOATE. [Concomitant]
     Active Substance: HYDROXYZINE PAMOATE
  4. VITAMIN D [Concomitant]
     Active Substance: VITAMIN D NOS
  5. ZIPRASIDONE. [Concomitant]
     Active Substance: ZIPRASIDONE
  6. VITAMIN B COMPLEX [Concomitant]
     Active Substance: CYANOCOBALAMIN\DEXPANTHENOL\NIACINAMIDE\PYRIDOXINE HYDROCHLORIDE\RIBOFLAVIN 5^-PHOSPHATE SODIUM\THIAMINE HYDROCHLORIDE\VITAMIN B COMPLEX
  7. NP THYROID [Suspect]
     Active Substance: LEVOTHYROXINE\LIOTHYRONINE
     Indication: HYPOTHYROIDISM
     Dosage: ?          QUANTITY:30 TABLET(S);?
     Route: 048
     Dates: start: 20170901
  8. 70/30 INSULIN [Concomitant]
     Active Substance: INSULIN NOS
  9. VITAMIN C WITH COLLAGEN [Concomitant]
  10. GABAPENTIN. [Concomitant]
     Active Substance: GABAPENTIN
  11. LANTUS SOLO STAR INJECTION PEN [Concomitant]
  12. OLIVE OIL/LEMON/COCONUT OIL [Concomitant]

REACTIONS (2)
  - Hyperhidrosis [None]
  - Heart rate increased [None]

NARRATIVE: CASE EVENT DATE: 20200302
